FAERS Safety Report 5040435-X (Version None)
Quarter: 2006Q2

REPORT INFORMATION
  Report Type: 
  Country: None (occurrence: None)
  Receive Date: 20060627
  Receipt Date: 20060627
  Transmission Date: 20061013
  Serious: Yes (Hospitalization)
  Sender: FDA-Public Use
  Company Number: None

PATIENT
  Age: 43 Year
  Sex: Male
  Weight: 79.3795 kg

DRUGS (1)
  1. GEODON [Suspect]
     Indication: PSYCHOTIC DISORDER
     Dosage: 60 MG BID PO
     Route: 048
     Dates: start: 20060304, end: 20060615

REACTIONS (8)
  - BLOOD PRESSURE INCREASED [None]
  - CHEST PAIN [None]
  - DRUG WITHDRAWAL SYNDROME [None]
  - ELECTROCARDIOGRAM ABNORMAL [None]
  - HEART RATE INCREASED [None]
  - NERVOUSNESS [None]
  - PALPITATIONS [None]
  - VISION BLURRED [None]
